FAERS Safety Report 9995084 (Version 1)
Quarter: 2014Q1

REPORT INFORMATION
  Report Type: Spontaneous
  Country: US (occurrence: None)
  Receive Date: 20140307
  Receipt Date: 20140307
  Transmission Date: 20141002
  Serious: No
  Sender: FDA-Public Use
  Company Number: None

PATIENT
  Age: 87 Year
  Sex: Female
  Weight: 52.16 kg

DRUGS (6)
  1. METHOCARBAMOL [Suspect]
     Indication: MUSCLE SPASMS
     Dosage: BY MOUTH, 30 TABLETS
     Dates: start: 20140129, end: 20140202
  2. METHOCARBAMOL [Suspect]
     Indication: MUSCLE STRAIN
     Dosage: BY MOUTH, 30 TABLETS
     Dates: start: 20140129, end: 20140202
  3. FLECAMIDE [Concomitant]
  4. PACEMAKER [Concomitant]
  5. MULTIPLE VITAMINS/MINERALS [Concomitant]
  6. ASPIRIN [Concomitant]

REACTIONS (5)
  - Dizziness [None]
  - Vision blurred [None]
  - Confusional state [None]
  - Feeling abnormal [None]
  - Feeling abnormal [None]
